FAERS Safety Report 18496537 (Version 3)
Quarter: 2021Q1

REPORT INFORMATION
  Report Type: Spontaneous
  Country: US (occurrence: US)
  Receive Date: 20201112
  Receipt Date: 20210218
  Transmission Date: 20210419
  Serious: No
  Sender: FDA-Public Use
  Company Number: US-CELGENEUS-USA-20201102466

PATIENT
  Sex: Female
  Weight: 80.36 kg

DRUGS (1)
  1. REVLIMID [Suspect]
     Active Substance: LENALIDOMIDE
     Indication: PLASMA CELL MYELOMA
     Dosage: 25 MILLIGRAM
     Route: 048
     Dates: start: 201806

REACTIONS (4)
  - Insomnia [Unknown]
  - Gastrooesophageal reflux disease [Unknown]
  - Dyspepsia [Not Recovered/Not Resolved]
  - Muscle spasms [Unknown]
